FAERS Safety Report 9394928 (Version 1)
Quarter: 2013Q3

REPORT INFORMATION
  Report Type: Spontaneous
  Country: CA (occurrence: None)
  Receive Date: 20130705
  Receipt Date: 20130705
  Transmission Date: 20140515
  Serious: Yes (Life-Threatening)
  Sender: FDA-Public Use
  Company Number: AUR-APL-2013-05582

PATIENT
  Age: 53 Year
  Sex: Female
  Weight: 67 kg

DRUGS (6)
  1. MIRTAZAPINE (MIRTAZAPINE) [Suspect]
     Indication: DEPRESSION
     Dosage: 30MG (30MG, 1 IN 1D)
     Dates: start: 201107, end: 201107
  2. CHAMPIX (VARENICLINE TARTRATE) [Suspect]
     Indication: SMOKING CESSATION THERAPY
     Dosage: 0.5 MG, 1-2 DAILY, ORAL
     Route: 048
     Dates: start: 2012
  3. CLONAZEPAM (CLONAZEPAM) [Concomitant]
  4. NEXIUM (ESOMEPRAZOLE MAGNESIUM) [Concomitant]
  5. NORVASC (AMLODIPINE BESILATE) [Concomitant]
  6. CELEBREX (CELECOXIB) [Concomitant]

REACTIONS (4)
  - Intentional overdose [None]
  - Suicide attempt [None]
  - Depression [None]
  - No therapeutic response [None]
